FAERS Safety Report 4440544-X (Version None)
Quarter: 2004Q3

REPORT INFORMATION
  Report Type: 
  Country: None (occurrence: None)
  Receive Date: 20040901
  Receipt Date: 20040901
  Transmission Date: 20050211
  Serious: Yes (Other)
  Sender: FDA-Public Use
  Company Number: None

PATIENT
  Age: 47 Year
  Sex: Male
  Weight: 56.6996 kg

DRUGS (2)
  1. AMEVIVE [Suspect]
     Indication: PSORIASIS
     Dosage: 15 MG IM Q W
     Route: 030
  2. EUCERIN LOTION [Concomitant]

REACTIONS (2)
  - ALDOLASE INCREASED [None]
  - ASTHENIA [None]
